FAERS Safety Report 8597814-3 (Version None)
Quarter: 2012Q3

REPORT INFORMATION
  Report Type: 
  Country: None (occurrence: None)
  Receive Date: 20120816
  Receipt Date: 20120813
  Transmission Date: 20120928
  Serious: Yes (Hospitalization, Other)
  Sender: FDA-Public Use
  Company Number: PHHY2012GR070477

PATIENT
  Age: 57 Year
  Sex: Female

DRUGS (2)
  1. AFINITOR [Suspect]
     Dosage: 1 DF, QD
     Route: 048
     Dates: start: 20120720, end: 20120810
  2. AROMASIN [Concomitant]
     Dosage: 1 DF, QD
     Route: 048
     Dates: start: 20120720, end: 20120810

REACTIONS (5)
  - VOMITING [None]
  - SPEECH DISORDER [None]
  - DIARRHOEA [None]
  - COMA [None]
  - CONFUSIONAL STATE [None]
